FAERS Safety Report 10459665 (Version 3)
Quarter: 2015Q4

REPORT INFORMATION
  Report Type: Spontaneous
  Country: US (occurrence: None)
  Receive Date: 20140915
  Receipt Date: 20151209
  Transmission Date: 20160304
  Serious: Yes (Hospitalization, Other)
  Sender: FDA-Public Use
  Company Number: ADR-2014-01663

PATIENT
  Sex: Female

DRUGS (2)
  1. LIORESAL [Suspect]
     Active Substance: BACLOFEN
     Indication: MUSCLE SPASTICITY
     Dosage: 691 MCG/DAY
  2. LIORESAL [Suspect]
     Active Substance: BACLOFEN
     Indication: MUSCLE SPASTICITY
     Dosage: 549.91 MCG/DAY

REACTIONS (41)
  - Gastritis [None]
  - Blood pressure decreased [None]
  - Urine amphetamine positive [None]
  - Lethargy [None]
  - Retching [None]
  - Somnolence [None]
  - Bradycardia [None]
  - Normochromic normocytic anaemia [None]
  - Loss of consciousness [None]
  - Irritability [None]
  - Depressed level of consciousness [None]
  - Mental status changes [None]
  - Respiratory rate decreased [None]
  - Syncope [None]
  - Dehydration [None]
  - Vomiting [None]
  - Nausea [None]
  - Adverse drug reaction [None]
  - Hypothermia [None]
  - Device damage [None]
  - Device leakage [None]
  - Constipation [None]
  - Arthralgia [None]
  - Leukopenia [None]
  - Discomfort [None]
  - Heart rate decreased [None]
  - Asthenia [None]
  - Pain in extremity [None]
  - Headache [None]
  - Haematemesis [None]
  - Hypotonia [None]
  - Metabolic acidosis [None]
  - Pneumonia aspiration [None]
  - Joint crepitation [None]
  - Movement disorder [None]
  - Overdose [None]
  - Urinary retention [None]
  - Malaise [None]
  - Device infusion issue [None]
  - Tendon disorder [None]
  - Agitation [None]
